FAERS Safety Report 13149988 (Version 4)
Quarter: 2018Q1

REPORT INFORMATION
  Report Type: Report from Study
  Country: US (occurrence: US)
  Receive Date: 20170124
  Receipt Date: 20180108
  Transmission Date: 20180508
  Serious: No
  Sender: FDA-Public Use
  Company Number: US-AMGEN-USASL2017001837

PATIENT
  Age: 71 Year
  Sex: Female
  Weight: 105.2 kg

DRUGS (1)
  1. REPATHA [Suspect]
     Active Substance: EVOLOCUMAB
     Indication: BLOOD CHOLESTEROL INCREASED
     Dosage: 140 MG, Q2WK
     Route: 065
     Dates: start: 201608

REACTIONS (4)
  - Wrong technique in product usage process [Unknown]
  - Memory impairment [Unknown]
  - Injection site pain [Unknown]
  - Drug dose omission [Unknown]

NARRATIVE: CASE EVENT DATE: 201702
